FAERS Safety Report 5041973-6 (Version None)
Quarter: 2006Q2

REPORT INFORMATION
  Report Type: 
  Country: None (occurrence: None)
  Receive Date: 20060630
  Receipt Date: 20060619
  Transmission Date: 20061013
  Serious: Yes (Hospitalization)
  Sender: FDA-Public Use
  Company Number: GXKR2006CA03412

PATIENT
  Age: 63 Year
  Sex: Female

DRUGS (7)
  1. CIPROFLOXACIN [Suspect]
     Indication: URINARY TRACT INFECTION
     Dosage: 300 MG, ORAL
     Route: 048
     Dates: start: 19960927
  2. COUMADIN [Suspect]
     Indication: ANTICOAGULATION DRUG LEVEL
     Dosage: 5 MG, ORAL
     Route: 048
     Dates: start: 19960925
  3. EPREX [Suspect]
     Indication: BLOOD DONOR
     Dosage: 2000 U, SUBUCTANEOUS
     Route: 058
     Dates: start: 19960903, end: 19960917
  4. DIGOXIN [Concomitant]
  5. FUROSEMIDE [Concomitant]
  6. RANITIDINE [Concomitant]
  7. TRIAMTERENE                (TRIAMTERENE) [Concomitant]

REACTIONS (8)
  - ATRIAL FIBRILLATION [None]
  - BLINDNESS TRANSIENT [None]
  - BLINDNESS UNILATERAL [None]
  - DRUG INTERACTION [None]
  - EMBOLISM [None]
  - HAEMATOCRIT DECREASED [None]
  - RETINAL DISORDER [None]
  - URINARY TRACT INFECTION [None]
